FAERS Safety Report 8076150-8 (Version None)
Quarter: 2012Q1

REPORT INFORMATION
  Report Type: 
  Country: None (occurrence: None)
  Receive Date: 20120127
  Receipt Date: 20111104
  Transmission Date: 20120608
  Serious: No
  Sender: FDA-Public Use
  Company Number: US-GLAXOSMITHKLINE-A0952403A

PATIENT
  Age: 65 Year

DRUGS (1)
  1. WELLBUTRIN [Suspect]

REACTIONS (1)
  - ACCIDENTAL OVERDOSE [None]
